FAERS Safety Report 17064352 (Version 4)
Quarter: 2020Q1

REPORT INFORMATION
  Report Type: Spontaneous
  Country: BE (occurrence: BE)
  Receive Date: 20191122
  Receipt Date: 20200217
  Transmission Date: 20200409
  Serious: Yes (Life-Threatening, Hospitalization, Other)
  Sender: FDA-Public Use
  Company Number: BE-PFIZER INC-2019504514

PATIENT
  Sex: Male
  Weight: 3.61 kg

DRUGS (1)
  1. PROSTIN E2 [Suspect]
     Active Substance: DINOPROSTONE
     Indication: LABOUR INDUCTION
     Dosage: 1 CO (3MG) AND AGAIN 3MG AFTER 2.5 HOURS
     Route: 064
     Dates: start: 20140813, end: 20140813

REACTIONS (4)
  - Cerebrovascular accident [Unknown]
  - Cerebral infarction [Unknown]
  - Seizure [Unknown]
  - Foetal exposure during delivery [Unknown]

NARRATIVE: CASE EVENT DATE: 2014
